FAERS Safety Report 14677962 (Version 1)
Quarter: 2018Q1

REPORT INFORMATION
  Report Type: Spontaneous
  Country: BR (occurrence: BR)
  Receive Date: 20180326
  Receipt Date: 20180326
  Transmission Date: 20180509
  Serious: Yes (Other)
  Sender: FDA-Public Use
  Company Number: BR-AMGEN-BRASP2018039821

PATIENT
  Age: 75 Year
  Sex: Female

DRUGS (1)
  1. ENBREL [Suspect]
     Active Substance: ETANERCEPT
     Indication: PRODUCT USED FOR UNKNOWN INDICATION
     Dosage: UNK
     Route: 065

REACTIONS (11)
  - Limb discomfort [Unknown]
  - Arthralgia [Unknown]
  - Intervertebral disc protrusion [Unknown]
  - Feeling abnormal [Not Recovered/Not Resolved]
  - Pain in extremity [Unknown]
  - Rheumatoid arthritis [Unknown]
  - Fall [Unknown]
  - Spinal pain [Unknown]
  - Skin discolouration [Unknown]
  - Osteoarthritis [Unknown]
  - Accident [Unknown]
